FAERS Safety Report 6261384-5 (Version None)
Quarter: 2009Q3

REPORT INFORMATION
  Report Type: 
  Country: None (occurrence: None)
  Receive Date: 20090707
  Receipt Date: 20090618
  Transmission Date: 20100115
  Serious: Yes (Hospitalization)
  Sender: FDA-Public Use
  Company Number: US257936

PATIENT
  Sex: Female

DRUGS (16)
  1. KINERET [Suspect]
     Indication: RHEUMATOID ARTHRITIS
     Dosage: (67 MCG QD , SUBCUTANEOUS)
     Route: 058
     Dates: start: 20010101, end: 20070725
  2. CELEBREX [Suspect]
     Dosage: (200 MG QD)
  3. PLAVIX [Suspect]
     Dosage: (75 MG QO ORAL)
     Route: 048
  4. PROTONIX [Concomitant]
  5. CARAFATE [Concomitant]
  6. FOLATE [Concomitant]
  7. VITAMIN B-12 [Concomitant]
  8. TRILEPTAL [Concomitant]
  9. GLYBURIDE [Concomitant]
  10. LEVOTHYROXINE SODIUM [Concomitant]
  11. AMITRIPTYLINE [Concomitant]
  12. PREDNISONE TAB [Concomitant]
  13. LIPITOR [Concomitant]
  14. LUNESTA [Concomitant]
  15. ASPIRIN [Concomitant]
  16. COREG [Concomitant]

REACTIONS (8)
  - CAROTID ARTERY STENOSIS [None]
  - DYSPNOEA [None]
  - GASTRIC ULCER HAEMORRHAGE [None]
  - HAEMATOMA [None]
  - HAEMOGLOBIN DECREASED [None]
  - LUNG NEOPLASM [None]
  - PERICARDIAL EFFUSION [None]
  - TYPE 2 DIABETES MELLITUS [None]
